FAERS Safety Report 4417035-5 (Version None)
Quarter: 2004Q3

REPORT INFORMATION
  Report Type: 
  Country: None (occurrence: None)
  Receive Date: 20040806
  Receipt Date: 20040722
  Transmission Date: 20050211
  Serious: Yes (Disabling, Other)
  Sender: FDA-Public Use
  Company Number: PHHO2004PH10408

PATIENT
  Age: 54 Year
  Sex: Male
  Weight: 71 kg

DRUGS (1)
  1. GLEEVEC [Suspect]
     Indication: MYELOFIBROSIS
     Dosage: 300 MG, QD
     Route: 048
     Dates: start: 20040112, end: 20040523

REACTIONS (5)
  - ANAEMIA [None]
  - ASTHENIA [None]
  - BLOOD CREATININE INCREASED [None]
  - GENERAL PHYSICAL HEALTH DETERIORATION [None]
  - SPLENOMEGALY [None]
